FAERS Safety Report 17675722 (Version 9)
Quarter: 2020Q2

REPORT INFORMATION
  Report Type: Spontaneous
  Country: US (occurrence: US)
  Receive Date: 20200416
  Receipt Date: 20200615
  Transmission Date: 20200714
  Serious: Yes (Other)
  Sender: FDA-Public Use
  Company Number: US-CELGENEUS-USA-20200403619

PATIENT
  Sex: Male
  Weight: 81.4 kg

DRUGS (4)
  1. ARANESP [Concomitant]
     Active Substance: DARBEPOETIN ALFA
     Indication: COLONY STIMULATING FACTOR THERAPY
     Route: 065
  2. SIMVASTATIN. [Concomitant]
     Active Substance: SIMVASTATIN
     Indication: PRODUCT USED FOR UNKNOWN INDICATION
     Route: 065
  3. REVLIMID [Suspect]
     Active Substance: LENALIDOMIDE
     Indication: REFRACTORY ANAEMIA WITH RINGED SIDEROBLASTS
     Dosage: 10 MILLIGRAM
     Route: 048
     Dates: start: 20191030
  4. REVLIMID [Suspect]
     Active Substance: LENALIDOMIDE
     Indication: OFF LABEL USE
     Dosage: 5 MILLIGRAM
     Route: 048
     Dates: start: 202005

REACTIONS (12)
  - Weight decreased [Unknown]
  - Pain [Unknown]
  - White blood cell count decreased [Not Recovered/Not Resolved]
  - Neutrophil count decreased [Unknown]
  - Product dose omission [Unknown]
  - Acute febrile neutrophilic dermatosis [Unknown]
  - Staphylococcal infection [Recovered/Resolved]
  - Basal cell carcinoma [Recovered/Resolved]
  - Platelet count decreased [Not Recovered/Not Resolved]
  - Somnolence [Unknown]
  - Dehydration [Recovering/Resolving]
  - Bone pain [Recovering/Resolving]
